FAERS Safety Report 5980070-X (Version None)
Quarter: 2008Q4

REPORT INFORMATION
  Report Type: 
  Country: None (occurrence: None)
  Receive Date: 20081205
  Receipt Date: 20081126
  Transmission Date: 20090506
  Serious: Yes (Hospitalization, Other)
  Sender: FDA-Public Use
  Company Number: AT-BAYER-200831788GPV

PATIENT
  Sex: Female

DRUGS (2)
  1. MIRENA [Suspect]
     Route: 015
     Dates: start: 20040826, end: 20080901
  2. YASMINELLE [Suspect]
     Indication: CONTRACEPTION
     Route: 048
     Dates: start: 20071018

REACTIONS (6)
  - ABDOMINAL PAIN LOWER [None]
  - APPENDICITIS [None]
  - IUCD COMPLICATION [None]
  - IUD MIGRATION [None]
  - PREGNANCY WITH CONTRACEPTIVE DEVICE [None]
  - RUPTURED ECTOPIC PREGNANCY [None]
